FAERS Safety Report 5905873-9 (Version None)
Quarter: 2008Q4

REPORT INFORMATION
  Report Type: 
  Country: None (occurrence: None)
  Receive Date: 20081001
  Receipt Date: 20081001
  Transmission Date: 20090506
  Serious: Yes (Hospitalization)
  Sender: FDA-Public Use
  Company Number: None

PATIENT
  Sex: Male
  Weight: 73 kg

DRUGS (1)
  1. BUPROPION HCL [Suspect]
     Indication: DEPRESSION
     Dosage: UNKNOWN UNKNOWN PO
     Route: 048
     Dates: start: 20080810, end: 20080820

REACTIONS (3)
  - BURNING SENSATION [None]
  - PAIN [None]
  - STEVENS-JOHNSON SYNDROME [None]
